FAERS Safety Report 25112445 (Version 1)
Quarter: 2025Q1

REPORT INFORMATION
  Report Type: Spontaneous
  Country: US (occurrence: None)
  Receive Date: 20250321
  Receipt Date: 20250321
  Transmission Date: 20250408
  Serious: Yes (Death)
  Sender: FDA-CTU
  Company Number: None

PATIENT
  Age: 78 Year
  Sex: Female
  Weight: 72.1 kg

DRUGS (1)
  1. TECLISTAMAB [Suspect]
     Active Substance: TECLISTAMAB
     Indication: Plasma cell myeloma
     Dates: start: 20240520, end: 20241209

REACTIONS (16)
  - Pyrexia [None]
  - Fatigue [None]
  - Pain in extremity [None]
  - Gait disturbance [None]
  - Blood sodium decreased [None]
  - Blood magnesium decreased [None]
  - Hypertransaminasaemia [None]
  - Neutrophil count decreased [None]
  - Nephrolithiasis [None]
  - Hepatocellular injury [None]
  - Infection [None]
  - Hepatic ischaemia [None]
  - Drug reaction with eosinophilia and systemic symptoms [None]
  - Drug-induced liver injury [None]
  - Immune-mediated hepatic disorder [None]
  - Therapy interrupted [None]

NARRATIVE: CASE EVENT DATE: 20241219
